FAERS Safety Report 8478028-4 (Version None)
Quarter: 2012Q2

REPORT INFORMATION
  Report Type: 
  Country: None (occurrence: None)
  Receive Date: 20120622
  Receipt Date: 20120612
  Transmission Date: 20120825
  Serious: Yes (Death)
  Sender: FDA-Public Use
  Company Number: US-AGG-06-2012-0501

PATIENT

DRUGS (5)
  1. TIROFIBAN HYDROCHLORIDE TIROFIBAN HYDROCHLORIDE [Suspect]
     Indication: CEREBRAL HAEMORRHAGE
     Dosage: 0.4?G/KG X 1, 1 X A HOUR INTRAVENOUS
     Route: 042
  2. TIROFIBAN HYDROCHLORIDE TIROFIBAN HYDROCHLORIDE [Suspect]
     Indication: CEREBRAL HAEMORRHAGE
     Dosage: 0.1?G/KG X 1, 1 X A MINUTE INTRAVENOUS
     Route: 042
  3. HEPARIN [Concomitant]
  4. CLOPIDOGREL [Concomitant]
  5. ASPIRIN [Concomitant]

REACTIONS (1)
  - HAEMORRHAGE INTRACRANIAL [None]
